FAERS Safety Report 9472565 (Version 1)
Quarter: 2013Q3

REPORT INFORMATION
  Report Type: Spontaneous
  Country: US (occurrence: None)
  Receive Date: 20130821
  Receipt Date: 20130821
  Transmission Date: 20140515
  Serious: No
  Sender: FDA-Public Use
  Company Number: None

PATIENT
  Age: 17 Year
  Sex: Female
  Weight: 67.6 kg

DRUGS (1)
  1. ABILIFY [Suspect]
     Dosage: 1 TAB (10MG), BID, ORAL
     Route: 048
     Dates: start: 20130813, end: 20130814

REACTIONS (2)
  - Musculoskeletal stiffness [None]
  - Tremor [None]
